FAERS Safety Report 8767787 (Version 1)
Quarter: 2012Q4

REPORT INFORMATION
  Report Type: 
  Country: GB (occurrence: GB)
  Receive Date: 20120905
  Receipt Date: 20120905
  Transmission Date: 20130627
  Serious: Yes (Disabling, Other)
  Sender: FDA-Public Use
  Company Number: GB-WATSON-2012-15451

PATIENT
  Age: 56 Year
  Sex: Female
  Weight: 53.97 kg

DRUGS (1)
  1. AMLODIPINE (UNKNOWN) [Suspect]
     Indication: HYPERTENSION
     Dosage: 5 mg, unknown
     Route: 048
     Dates: start: 20120329, end: 20120426

REACTIONS (11)
  - Oedema peripheral [Recovered/Resolved]
  - Dissociation [Recovered/Resolved]
  - Lethargy [Recovered/Resolved]
  - Depression [Recovered/Resolved]
  - Pain in extremity [Recovered/Resolved]
  - Disorientation [Recovered/Resolved]
  - Vascular injury [Recovered/Resolved]
  - Panic attack [Recovered/Resolved]
  - Anxiety [Recovered/Resolved]
  - Dizziness [Recovered/Resolved]
  - Gait disturbance [Recovered/Resolved]
